FAERS Safety Report 18382527 (Version 5)
Quarter: 2020Q4

REPORT INFORMATION
  Report Type: Spontaneous
  Country: US (occurrence: US)
  Receive Date: 20201014
  Receipt Date: 20201123
  Transmission Date: 20210114
  Serious: Yes (Other)
  Sender: FDA-Public Use
  Company Number: US-PFIZER INC-2020390462

PATIENT
  Age: 3 Year
  Sex: Female

DRUGS (17)
  1. HYDROCORTISONE. [Suspect]
     Active Substance: HYDROCORTISONE
     Dosage: 8.1 MG/M2, 1X/DAY ((8.1 MG/M2/D))
     Route: 048
  2. HYDROCORTISONE. [Suspect]
     Active Substance: HYDROCORTISONE
     Dosage: 5.8 MG/M2, 1X/DAY
     Route: 048
  3. FLUDROCORTISONE [Concomitant]
     Active Substance: FLUDROCORTISONE
     Indication: ADRENOGENITAL SYNDROME
     Dosage: 0.1 MG, 1X/DAY
  4. FLUDROCORTISONE [Concomitant]
     Active Substance: FLUDROCORTISONE
     Indication: RENAL SALT-WASTING SYNDROME
     Dosage: 0.05 MG, 1X/DAY
  5. HYDROCORTISONE. [Suspect]
     Active Substance: HYDROCORTISONE
     Indication: RENAL SALT-WASTING SYNDROME
     Dosage: 1 DF, 1X/DAY (10MG IN WATER (10 ML))
  6. HYDROCORTISONE. [Suspect]
     Active Substance: HYDROCORTISONE
     Dosage: 6.5 MG/M2, 1X/DAY
     Route: 048
  7. HYDROCORTISONE. [Suspect]
     Active Substance: HYDROCORTISONE
     Dosage: 6.6 MG/M2, 1X/DAY
     Route: 048
  8. HYDROCORTISONE. [Suspect]
     Active Substance: HYDROCORTISONE
     Indication: ADRENOGENITAL SYNDROME
     Dosage: 1 DF, 1X/DAY (A 5 MG IN WATER (5 ML))
  9. HYDROCORTISONE. [Suspect]
     Active Substance: HYDROCORTISONE
     Dosage: UNK, 1X/DAY
     Route: 048
  10. HYDROCORTISONE. [Suspect]
     Active Substance: HYDROCORTISONE
     Dosage: 18.7 MG/M2, 1X/DAY
     Route: 048
  11. HYDROCORTISONE. [Suspect]
     Active Substance: HYDROCORTISONE
     Dosage: 12.6 MG/M2, 1X/DAY
     Route: 048
  12. SODIUM CHLORIDE. [Concomitant]
     Active Substance: SODIUM CHLORIDE
     Indication: ADRENOGENITAL SYNDROME
  13. HYDROCORTISONE. [Suspect]
     Active Substance: HYDROCORTISONE
     Dosage: 12.2 MG/M2, 1X/DAY
     Route: 048
  14. HYDROCORTISONE. [Suspect]
     Active Substance: HYDROCORTISONE
     Dosage: UNK, 1X/DAY (TABLETS GIVEN 3 TIMES DAILY)
     Route: 048
  15. HYDROCORTISONE. [Suspect]
     Active Substance: HYDROCORTISONE
     Dosage: 7.1 MG/M2, 1X/DAY
     Route: 048
  16. SODIUM CHLORIDE. [Concomitant]
     Active Substance: SODIUM CHLORIDE
     Indication: RENAL SALT-WASTING SYNDROME
     Dosage: UNK, 1X/DAY (10.2 MEQ/KG)
  17. HYDROCORTISONE. [Suspect]
     Active Substance: HYDROCORTISONE
     Dosage: 7.9 MG/M2, 1X/DAY
     Route: 048

REACTIONS (5)
  - Hypothalamic pituitary adrenal axis suppression [Recovered/Resolved]
  - Incorrect dose administered [Unknown]
  - Cushing^s syndrome [Recovered/Resolved]
  - Gastric ulcer [Unknown]
  - Hypertension [Recovering/Resolving]
